FAERS Safety Report 15391479 (Version 2)
Quarter: 2018Q3

REPORT INFORMATION
  Report Type: Spontaneous
  Country: US (occurrence: US)
  Receive Date: 20180917
  Receipt Date: 20180919
  Transmission Date: 20181010
  Serious: Yes (Hospitalization, Other)
  Sender: FDA-Public Use
  Company Number: PHEH2018US037968

PATIENT
  Age: 58 Year
  Sex: Male
  Weight: 126 kg

DRUGS (17)
  1. CYCLOBENZAPRINE. [Concomitant]
     Active Substance: CYCLOBENZAPRINE
     Indication: PRODUCT USED FOR UNKNOWN INDICATION
     Dosage: UNK
     Route: 065
  2. SIMETHICONE (DIMETHICONE) [Concomitant]
     Active Substance: DIMETHICONE
     Indication: PRODUCT USED FOR UNKNOWN INDICATION
     Route: 065
  3. IBUPROFEN. [Suspect]
     Active Substance: IBUPROFEN
     Indication: PAIN
     Dosage: UNK
     Route: 065
  4. HYDRALAZINE [Concomitant]
     Active Substance: HYDRALAZINE HYDROCHLORIDE
     Indication: PRODUCT USED FOR UNKNOWN INDICATION
  5. LENVIMA [Suspect]
     Active Substance: LENVATINIB
     Indication: THYROID CANCER
     Dosage: 24 MG, UNK (1?2 UNKNOWN)
     Route: 048
     Dates: start: 20160422, end: 201605
  6. LENVIMA [Suspect]
     Active Substance: LENVATINIB
     Dosage: 24 MG, QD
     Route: 048
     Dates: start: 20160509, end: 201605
  7. LEVOTHYROXINE. [Concomitant]
     Active Substance: LEVOTHYROXINE
     Indication: PRODUCT USED FOR UNKNOWN INDICATION
     Dosage: UNK
     Route: 065
  8. LENVIMA [Suspect]
     Active Substance: LENVATINIB
     Dosage: 10 UNK, QD
     Route: 048
     Dates: start: 2017
  9. LISINOPRIL. [Concomitant]
     Active Substance: LISINOPRIL
     Indication: PRODUCT USED FOR UNKNOWN INDICATION
     Dosage: 20 MG, QD
     Route: 065
  10. LENVIMA [Suspect]
     Active Substance: LENVATINIB
     Dosage: 14 MG, QD
     Route: 048
     Dates: start: 20161112, end: 201702
  11. LENVIMA [Suspect]
     Active Substance: LENVATINIB
     Dosage: 10 UNK, QD
     Route: 048
  12. OXYCODONE HYDROCHLORIDE. [Concomitant]
     Active Substance: OXYCODONE HYDROCHLORIDE
     Indication: PAIN
     Dosage: UNK
     Route: 065
  13. LENVIMA [Suspect]
     Active Substance: LENVATINIB
     Dosage: 14 MG, QD
     Route: 048
     Dates: start: 201606, end: 201611
  14. AMLODIPINE [Concomitant]
     Active Substance: AMLODIPINE BESYLATE
     Indication: PRODUCT USED FOR UNKNOWN INDICATION
     Dosage: 10 MG, QD
     Route: 065
  15. LENVIMA [Suspect]
     Active Substance: LENVATINIB
     Dosage: 20 MG, QD
     Route: 048
     Dates: start: 20160601, end: 201606
  16. ATENOLOL. [Suspect]
     Active Substance: ATENOLOL
     Indication: HYPERTENSION
     Dosage: UNK
     Route: 065
     Dates: start: 2016
  17. LENVIMA [Suspect]
     Active Substance: LENVATINIB
     Dosage: 14 UNK, QD
     Route: 048
     Dates: start: 20170222

REACTIONS (19)
  - Gastric ulcer haemorrhage [Unknown]
  - Dyspnoea [Unknown]
  - Cholecystitis [Unknown]
  - Blood pressure decreased [Unknown]
  - Metastases to lung [Unknown]
  - Pain [Unknown]
  - Abdominal discomfort [Unknown]
  - Heart rate decreased [Unknown]
  - Nasopharyngitis [Unknown]
  - Neoplasm progression [Unknown]
  - Thyroglobulin increased [Unknown]
  - Gastric disorder [Recovered/Resolved]
  - Stomatitis [Unknown]
  - Blood pressure increased [Unknown]
  - Malignant neoplasm progression [Unknown]
  - Fatigue [Unknown]
  - Oral pain [Unknown]
  - Headache [Unknown]
  - Nausea [Unknown]

NARRATIVE: CASE EVENT DATE: 2016
